FAERS Safety Report 4366841-4 (Version None)
Quarter: 2004Q2

REPORT INFORMATION
  Report Type: 
  Country: None (occurrence: None)
  Receive Date: 20040528
  Receipt Date: 20031212
  Transmission Date: 20050107
  Serious: No
  Sender: FDA-Public Use
  Company Number: US-GLAXOSMITHKLINE-A0442990A

PATIENT
  Age: 16 Year
  Sex: Male

DRUGS (1)
  1. BACTROBAN [Suspect]
     Indication: ILL-DEFINED DISORDER
     Route: 061
     Dates: start: 20031101

REACTIONS (1)
  - HYPERSENSITIVITY [None]
